FAERS Safety Report 5007211-5 (Version None)
Quarter: 2006Q1

REPORT INFORMATION
  Report Type: 
  Country: None (occurrence: None)
  Receive Date: 20060320
  Receipt Date: 20050519
  Transmission Date: 20060701
  Serious: Yes (Other)
  Sender: FDA-Public Use
  Company Number: 2005-05-1440

PATIENT
  Age: 36 Year
  Sex: Male
  Weight: 75.7507 kg

DRUGS (11)
  1. PEG-INTRON [Suspect]
     Indication: HEPATITIS C
     Dosage: 120 MCG QWK
     Dates: start: 20040301
  2. PEG-INTRON [Suspect]
     Indication: HEPATITIS C
     Dosage: 120 MCG QWK
     Dates: start: 20040801
  3. REBETOL [Suspect]
     Indication: HEPATITIS C
     Dosage: 1000 MG TIW ORAL
     Route: 048
     Dates: start: 20040301
  4. REBETOL [Suspect]
     Indication: HEPATITIS C
     Dosage: 1000 MG TIW ORAL
     Route: 048
     Dates: start: 20040801
  5. BENADRYL [Concomitant]
  6. ZANTAC [Concomitant]
  7. IBUPROFEN [Concomitant]
  8. LOMOTIL [Concomitant]
  9. ROBAXIN [Concomitant]
  10. ACIDOPHILUS [Concomitant]
  11. PHENEGRAN AND CHLORAL HYDRATE MIXTURE [Concomitant]

REACTIONS (11)
  - BACK PAIN [None]
  - DEPRESSION [None]
  - DRUG DEPENDENCE [None]
  - FOLLICULITIS [None]
  - HEARING IMPAIRED [None]
  - HYPERSENSITIVITY [None]
  - LYMPHADENOPATHY [None]
  - NEUTROPHIL COUNT DECREASED [None]
  - RASH [None]
  - THERAPY NON-RESPONDER [None]
  - VISUAL DISTURBANCE [None]
